FAERS Safety Report 6517739-4 (Version None)
Quarter: 2009Q4

REPORT INFORMATION
  Report Type: 
  Country: None (occurrence: None)
  Receive Date: 20091224
  Receipt Date: 20091214
  Transmission Date: 20100525
  Serious: Yes (Hospitalization)
  Sender: FDA-Public Use
  Company Number: DE-SANOFI-AVENTIS-200910279EU

PATIENT
  Age: 83 Year
  Sex: Female

DRUGS (8)
  1. INDAPAMIDE [Suspect]
     Indication: HYPERTENSION
     Route: 048
     Dates: end: 20080731
  2. DIGITOXIN INJ [Suspect]
     Route: 048
     Dates: end: 20080731
  3. ENALAPRIL MALEATE [Concomitant]
  4. HUMAN ACTRAPHANE [Concomitant]
  5. PHENPROCOUMON [Concomitant]
  6. SORTIS ^PARKE DAVIS^ [Concomitant]
     Dates: start: 20080601
  7. AMLODIPINE [Concomitant]
  8. MOXONIDINE [Concomitant]

REACTIONS (2)
  - BRADYCARDIA [None]
  - NAUSEA [None]
